FAERS Safety Report 11068290 (Version 1)
Quarter: 2015Q2

REPORT INFORMATION
  Report Type: Spontaneous
  Country: US (occurrence: US)
  Receive Date: 20150427
  Receipt Date: 20150427
  Transmission Date: 20150821
  Serious: No
  Sender: FDA-Public Use
  Company Number: US-ASTRAZENECA-2014SE30816

PATIENT
  Age: 83 Year
  Sex: Female
  Weight: 72.6 kg

DRUGS (4)
  1. PULMICORT FLEXHALER [Suspect]
     Active Substance: BUDESONIDE
     Indication: ASTHMA
     Dosage: 180MCG 2 PUFFS BID
     Route: 055
     Dates: start: 20140502
  2. CRESTOR [Suspect]
     Active Substance: ROSUVASTATIN CALCIUM
     Indication: BLOOD CHOLESTEROL ABNORMAL
     Route: 048
  3. PREDISONE [Concomitant]
     Active Substance: PREDNISONE
     Indication: RHEUMATOID ARTHRITIS
  4. VITAMIN D2 [Concomitant]
     Active Substance: ERGOCALCIFEROL
     Indication: PAIN

REACTIONS (5)
  - Cough [Not Recovered/Not Resolved]
  - Arthralgia [Unknown]
  - Circumstance or information capable of leading to device use error [Unknown]
  - Adverse event [Recovering/Resolving]
  - Wheezing [Recovering/Resolving]
